FAERS Safety Report 5828817-7 (Version None)
Quarter: 2008Q3

REPORT INFORMATION
  Report Type: 
  Country: None (occurrence: None)
  Receive Date: 20080731
  Receipt Date: 20080723
  Transmission Date: 20090109
  Serious: Yes (Hospitalization)
  Sender: FDA-Public Use
  Company Number: US-ASTRAZENECA-2008UW06693

PATIENT

DRUGS (4)
  1. SEROQUEL [Suspect]
  2. MULTIPLE OTHER MEDICATIONS [Concomitant]
  3. HIGH DOSE STEROIDS [Concomitant]
  4. VASOPRESSORS [Concomitant]

REACTIONS (2)
  - PANCREATITIS [None]
  - SEPSIS [None]
